FAERS Safety Report 5157933-0 (Version None)
Quarter: 2006Q4

REPORT INFORMATION
  Report Type: 
  Country: None (occurrence: None)
  Receive Date: 20061116
  Receipt Date: 20061103
  Transmission Date: 20070319
  Serious: Yes (Life-Threatening)
  Sender: FDA-Public Use
  Company Number: 2006135104

PATIENT
  Age: 44 Year
  Sex: Male
  Weight: 123.3784 kg

DRUGS (1)
  1. SUTENT [Suspect]
     Indication: METASTATIC RENAL CELL CARCINOMA
     Dosage: 50 MG (DAILY -4 WEEKS ON, 2 WEEKS OFF), ORAL
     Route: 048
     Dates: start: 20060823

REACTIONS (2)
  - ANASTOMOTIC LEAK [None]
  - FISTULA [None]
